FAERS Safety Report 5082534-2 (Version None)
Quarter: 2006Q3

REPORT INFORMATION
  Report Type: 
  Country: None (occurrence: None)
  Receive Date: 20060817
  Receipt Date: 20060727
  Transmission Date: 20061208
  Serious: Yes (Other)
  Sender: FDA-Public Use
  Company Number: US-ROCHE-457502

PATIENT
  Age: 21 Year
  Sex: Female

DRUGS (1)
  1. ACCUTANE [Suspect]
     Indication: DRUG USE FOR UNKNOWN INDICATION
     Route: 064
     Dates: start: 20060404, end: 20060703

REACTIONS (3)
  - ABORTION INDUCED [None]
  - DRUG EXPOSURE DURING PREGNANCY [None]
  - PREGNANCY [None]
